FAERS Safety Report 20113042 (Version 1)
Quarter: 2021Q4

REPORT INFORMATION
  Report Type: Spontaneous
  Country: US (occurrence: None)
  Receive Date: 20211124
  Receipt Date: 20211124
  Transmission Date: 20220304
  Serious: Yes (Hospitalization)
  Sender: FDA-Public Use
  Company Number: None

PATIENT
  Age: 52 Year
  Sex: Female
  Weight: 81 kg

DRUGS (6)
  1. AIMOVIG [Suspect]
     Active Substance: ERENUMAB-AOOE
     Indication: Migraine
     Dosage: OTHER QUANTITY : 1 INJECTION(S);?OTHER FREQUENCY : ONCE A MONTH;?
     Route: 058
     Dates: start: 20210420, end: 20210920
  2. ONDANSETRON [Concomitant]
     Active Substance: ONDANSETRON
  3. FLUOXETINE [Concomitant]
     Active Substance: FLUOXETINE HYDROCHLORIDE
  4. COENZYME Q10 [Concomitant]
     Active Substance: DIETARY SUPPLEMENT\UBIDECARENONE
  5. VITAMINS [Concomitant]
     Active Substance: VITAMINS
  6. B2 [Concomitant]

REACTIONS (7)
  - Nausea [None]
  - Bowel movement irregularity [None]
  - Constipation [None]
  - Migraine [None]
  - Therapy non-responder [None]
  - Concussion [None]
  - Road traffic accident [None]

NARRATIVE: CASE EVENT DATE: 20210929
